FAERS Safety Report 13618101 (Version 7)
Quarter: 2018Q1

REPORT INFORMATION
  Report Type: Spontaneous
  Country: CA (occurrence: CA)
  Receive Date: 20170606
  Receipt Date: 20180319
  Transmission Date: 20180508
  Serious: Yes (Other)
  Sender: FDA-Public Use
  Company Number: CA-JNJFOC-20170602017

PATIENT
  Age: 35 Year
  Sex: Female

DRUGS (13)
  1. RANITIDINE. [Interacting]
     Active Substance: RANITIDINE
     Indication: GASTROOESOPHAGEAL REFLUX DISEASE
     Route: 048
  2. VITAMIN C [Concomitant]
     Active Substance: ASCORBIC ACID
     Indication: PRODUCT USED FOR UNKNOWN INDICATION
     Route: 048
  3. INVEGA [Suspect]
     Active Substance: PALIPERIDONE
     Indication: PSYCHOTIC DISORDER
     Route: 048
     Dates: start: 2015
  4. INVEGA [Suspect]
     Active Substance: PALIPERIDONE
     Indication: PSYCHOTIC DISORDER
     Route: 048
  5. RESTORALAX [Interacting]
     Active Substance: POLYETHYLENE GLYCOL 3350
     Indication: PRODUCT USED FOR UNKNOWN INDICATION
     Route: 065
  6. CIPRALEX [Concomitant]
     Active Substance: ESCITALOPRAM OXALATE
     Indication: DEPRESSION
     Route: 048
  7. CALCIUM [Concomitant]
     Active Substance: CALCIUM
     Indication: PRODUCT USED FOR UNKNOWN INDICATION
     Route: 048
  8. VITAMIN D [Concomitant]
     Active Substance: CHOLECALCIFEROL
     Indication: PRODUCT USED FOR UNKNOWN INDICATION
     Route: 048
  9. AMITRIPTYLINE [Interacting]
     Active Substance: AMITRIPTYLINE
     Indication: PRODUCT USED FOR UNKNOWN INDICATION
     Route: 065
  10. METAMUCIL [Interacting]
     Active Substance: PLANTAGO SEED
     Indication: PRODUCT USED FOR UNKNOWN INDICATION
     Route: 065
  11. SULFATRIM [Concomitant]
     Active Substance: SULFAMETHOXAZOLE\TRIMETHOPRIM
     Indication: PROPHYLAXIS URINARY TRACT INFECTION
     Dosage: 2 TABLETS EVERY MORNING
     Route: 048
  12. DIAZEPAM. [Concomitant]
     Active Substance: DIAZEPAM
     Indication: PRODUCT USED FOR UNKNOWN INDICATION
     Route: 048
  13. MAGNESIUM OXIDE. [Concomitant]
     Active Substance: MAGNESIUM OXIDE
     Indication: PRODUCT USED FOR UNKNOWN INDICATION
     Route: 048

REACTIONS (29)
  - Amenorrhoea [Recovered/Resolved]
  - Slow speech [Unknown]
  - Hypothyroidism [Unknown]
  - Product use issue [Unknown]
  - Agitation [Recovering/Resolving]
  - Aggression [Unknown]
  - Generalised oedema [Not Recovered/Not Resolved]
  - Hyperprolactinaemia [Unknown]
  - Off label use [Unknown]
  - Weight increased [Unknown]
  - Vision blurred [Unknown]
  - Neurological symptom [Unknown]
  - Musculoskeletal stiffness [Unknown]
  - Breast enlargement [Unknown]
  - Diverticulitis [Unknown]
  - Insomnia [Recovering/Resolving]
  - Gastrointestinal hypomotility [Unknown]
  - Anal incontinence [Unknown]
  - Bruxism [Unknown]
  - Hypersomnia [Unknown]
  - Drug interaction [Unknown]
  - Anxiety [Recovering/Resolving]
  - Depressed mood [Recovering/Resolving]
  - Tremor [Unknown]
  - Musculoskeletal pain [Unknown]
  - Drug intolerance [Unknown]
  - Gastrooesophageal reflux disease [Unknown]
  - Hypoparathyroidism [Unknown]
  - Dysuria [Unknown]

NARRATIVE: CASE EVENT DATE: 201709
